FAERS Safety Report 8679583 (Version 2)
Quarter: 2013Q4

REPORT INFORMATION
  Report Type: Report from Study
  Country: BE (occurrence: BE)
  Receive Date: 20120724
  Receipt Date: 20131108
  Transmission Date: 20140711
  Serious: Yes (Hospitalization)
  Sender: FDA-Public Use
  Company Number: BE-009507513-2012SP029258

PATIENT
  Age: 72 Year
  Sex: Female

DRUGS (4)
  1. REBETOL [Suspect]
     Indication: HEPATITIS C
     Dosage: 1000 MG, BID
     Dates: start: 20120507, end: 20120530
  2. REBETOL [Suspect]
     Dosage: 800 MG, BID
     Dates: start: 201205
  3. PEGINTRON [Suspect]
     Indication: HEPATITIS C
     Dosage: 100 MICROGRAMS, QW
     Dates: start: 20120507, end: 20120528
  4. VICTRELIS [Suspect]
     Indication: HEPATITIS C
     Dosage: 2400 MG, TID
     Dates: start: 20120528, end: 20120530

REACTIONS (5)
  - Lung disorder [Recovered/Resolved]
  - Renal disorder [Recovered/Resolved]
  - Blood disorder [Recovered/Resolved]
  - Anaemia [Unknown]
  - Amnesia [Unknown]
